FAERS Safety Report 24283209 (Version 1)
Quarter: 2024Q3

REPORT INFORMATION
  Report Type: Spontaneous
  Country: US (occurrence: None)
  Receive Date: 20240903
  Receipt Date: 20240903
  Transmission Date: 20241017
  Serious: Yes (Other)
  Sender: Public
  Company Number: None

PATIENT
  Age: 49 Year
  Sex: Female

DRUGS (1)
  1. RINVOQ [Suspect]
     Active Substance: UPADACITINIB
     Indication: Ankylosing spondylitis
     Dosage: 15 MG DAILY ORAL
     Route: 048
     Dates: start: 20240822, end: 20240901

REACTIONS (3)
  - Petit mal epilepsy [None]
  - Amnesia [None]
  - Drooling [None]

NARRATIVE: CASE EVENT DATE: 20240901
